FAERS Safety Report 7032871-7 (Version None)
Quarter: 2010Q4

REPORT INFORMATION
  Report Type: 
  Country: None (occurrence: None)
  Receive Date: 20101007
  Receipt Date: 20100929
  Transmission Date: 20110411
  Serious: Yes (Other)
  Sender: FDA-Public Use
  Company Number: JP-ROCHE-684664

PATIENT
  Sex: Female
  Weight: 29 kg

DRUGS (11)
  1. ACTEMRA [Suspect]
     Route: 041
     Dates: start: 20100106
  2. IBRUPROFEN [Concomitant]
     Dosage: NOTE: PREMEDICATION OF THIS MEDICINE, DOSE FORM : PERORAL AGENT
     Route: 048
     Dates: start: 20100106, end: 20100106
  3. TALION [Concomitant]
     Route: 048
     Dates: start: 20100106, end: 20100106
  4. PREDNISOLONE [Concomitant]
     Route: 048
  5. TANATRIL [Concomitant]
     Route: 048
  6. ADALAT [Concomitant]
     Route: 048
  7. NEORAL [Concomitant]
     Route: 048
  8. OMEPRAZOLE [Concomitant]
     Route: 048
  9. CELCOX [Concomitant]
     Route: 048
  10. RHEUMATREX [Concomitant]
     Route: 048
     Dates: start: 20100204
  11. FOLIAMIN [Concomitant]
     Route: 048
     Dates: start: 20100204

REACTIONS (3)
  - CEREBRAL INFARCTION [None]
  - HEADACHE [None]
  - VENTRICULAR ARRHYTHMIA [None]
